FAERS Safety Report 10193964 (Version 1)
Quarter: 2014Q2

REPORT INFORMATION
  Report Type: Spontaneous
  Country: US (occurrence: US)
  Receive Date: 20140524
  Receipt Date: 20140524
  Transmission Date: 20141212
  Serious: No
  Sender: FDA-Public Use
  Company Number: US-SANOFI-AVENTIS-2013SA046576

PATIENT
  Age: 75 Year
  Sex: Female

DRUGS (3)
  1. LANTUS SOLOSTAR [Suspect]
     Indication: TYPE 2 DIABETES MELLITUS
     Dosage: DOSE:8 UNIT(S)
     Route: 058
     Dates: start: 20130404
  2. SOLOSTAR [Suspect]
     Indication: DEVICE THERAPY
     Dates: start: 20130404
  3. BYETTA [Concomitant]
     Dosage: BEFORE BREAKFAST AND BEFORE DINNER

REACTIONS (7)
  - Weight increased [Unknown]
  - Hunger [Unknown]
  - Feeling abnormal [Unknown]
  - Blood glucose decreased [Unknown]
  - Blood glucose abnormal [Unknown]
  - Blood glucose increased [Unknown]
  - Incorrect product storage [Unknown]
